FAERS Safety Report 7645889-8 (Version None)
Quarter: 2011Q3

REPORT INFORMATION
  Report Type: 
  Country: None (occurrence: None)
  Receive Date: 20110729
  Receipt Date: 20110720
  Transmission Date: 20111222
  Serious: Yes (Hospitalization, Other)
  Sender: FDA-Public Use
  Company Number: US-ASTRAZENECA-2007UW19654

PATIENT
  Age: 15527 Day
  Sex: Female
  Weight: 65.3 kg

DRUGS (26)
  1. SEROQUEL [Suspect]
     Indication: SLEEP DISORDER
     Route: 048
     Dates: start: 20010101
  2. SEROQUEL [Suspect]
     Dosage: 25-300 MG
     Route: 048
     Dates: start: 20040316
  3. SYNTHROID [Concomitant]
     Dates: start: 20040315
  4. ULTRAM [Concomitant]
     Indication: PAIN
     Dosage: 50 MG 1 TABLET AT BEDTIME FOR 7 DAYS THEN INCERASE TO 1 TABLET FOR EVERY 12 HOURS
     Route: 048
     Dates: start: 20080404
  5. ZANAFLEX [Concomitant]
     Dosage: 4 MG, 1 TABLET AT BEDTIME FOR 7 DAYS THEN 1 TABLET TWO TIMES A DAY THEN 1 TABLET THREE TIMES A DAY
     Route: 048
     Dates: start: 20080404
  6. SEROQUEL [Suspect]
     Indication: BIPOLAR DISORDER
     Route: 048
     Dates: start: 20010101
  7. SEROQUEL [Suspect]
     Indication: ANXIETY
     Route: 048
     Dates: start: 20010101
  8. SEROQUEL [Suspect]
     Indication: AGITATION
     Route: 048
     Dates: start: 20010101
  9. ZYPREXA [Concomitant]
     Dates: start: 20050101
  10. OXYCONTIN [Concomitant]
     Route: 048
     Dates: start: 20040315
  11. TIZANIDINE HCL [Concomitant]
     Dosage: 4 MG, 1 TAB AT 0800 AM, 1 TAB AT 0200 PM, THEN 8 MG EVERY NIGHT
     Route: 048
     Dates: start: 20080404
  12. NEURONTIN [Concomitant]
     Dosage: 300 MG, 1 TAB DAILY FOR 7 DAYS THEN 1 TABLET TWO TIMES A DAY
     Dates: start: 20080404
  13. CLOZAPINE [Concomitant]
     Dates: start: 20010101, end: 20070101
  14. ZOLOFT [Concomitant]
     Route: 048
     Dates: start: 20040218
  15. LITHIUM CARBONATE [Concomitant]
  16. SEROQUEL [Suspect]
     Dosage: 25-300 MG
     Route: 048
     Dates: start: 20040316
  17. SEROQUEL [Suspect]
     Dosage: 25-300 MG
     Route: 048
     Dates: start: 20040316
  18. XANAX [Concomitant]
     Dates: start: 20040315
  19. DESYREL [Concomitant]
     Dates: start: 20040315
  20. SEROQUEL [Suspect]
     Dosage: 25-300 MG
     Route: 048
     Dates: start: 20040316
  21. BACLOFEN [Concomitant]
     Indication: MUSCLE SPASMS
     Route: 048
     Dates: start: 20080404
  22. ZOLOFT [Concomitant]
     Dates: start: 20010101, end: 20050101
  23. NEURONTIN [Concomitant]
     Route: 048
     Dates: start: 20080404
  24. SEROQUEL [Suspect]
     Indication: DEPRESSION
     Route: 048
     Dates: start: 20010101
  25. SEROQUEL [Suspect]
     Dosage: 25-300 MG
     Route: 048
     Dates: start: 20040316
  26. PREGABALIN [Concomitant]
     Dosage: 150 MG, 1 TAB EVERY NIGHT X 4 DAYS, THEN INCREASE 150 MG 2 X A DAY
     Route: 048
     Dates: start: 20080404

REACTIONS (5)
  - FEMUR FRACTURE [None]
  - DIABETES MELLITUS [None]
  - DIABETIC COMA [None]
  - DRUG DETOXIFICATION [None]
  - PELVIC FRACTURE [None]
